FAERS Safety Report 26077660 (Version 1)
Quarter: 2025Q4

REPORT INFORMATION
  Report Type: Spontaneous
  Country: US (occurrence: US)
  Receive Date: 20251122
  Receipt Date: 20251122
  Transmission Date: 20260117
  Serious: No
  Sender: AMGEN
  Company Number: US-AMGEN-USASP2025228563

PATIENT
  Age: 39 Year
  Sex: Female

DRUGS (7)
  1. OTEZLA [Suspect]
     Active Substance: APREMILAST
     Indication: Guttate psoriasis
     Dosage: 30 MILLIGRAM, BID
     Route: 048
     Dates: start: 20250123
  2. ARIPIPRAZOLE [Concomitant]
     Active Substance: ARIPIPRAZOLE
     Dosage: 15 MILLIGRAM
  3. DEXTROAMPHETAMINE [Concomitant]
     Active Substance: DEXTROAMPHETAMINE
     Dosage: 10 MILLIGRAM
  4. LORAZEPAM [Concomitant]
     Active Substance: LORAZEPAM
     Dosage: 0.5 MILLIGRAM
  5. ONDANSETRON [Concomitant]
     Active Substance: ONDANSETRON
     Dosage: 8 MILLIGRAM (ORALLY DISINTEGRATING TABLET)
     Route: 048
  6. OXYCODONE [Concomitant]
     Active Substance: OXYCODONE
     Dosage: 5 MILLIGRAM
  7. SPRAVATO [Concomitant]
     Active Substance: ESKETAMINE
     Dosage: 84 MILLIGRAM

REACTIONS (4)
  - Diarrhoea [Recovered/Resolved]
  - Psoriasis [Not Recovered/Not Resolved]
  - Product dose omission issue [Unknown]
  - Intentional product misuse [Unknown]

NARRATIVE: CASE EVENT DATE: 20250101
